FAERS Safety Report 5636984-3 (Version None)
Quarter: 2008Q1

REPORT INFORMATION
  Report Type: 
  Country: None (occurrence: None)
  Receive Date: 20080225
  Receipt Date: 20070320
  Transmission Date: 20080703
  Serious: No
  Sender: FDA-Public Use
  Company Number: US-BRISTOL-MYERS SQUIBB COMPANY-13719901

PATIENT
  Sex: Female

DRUGS (3)
  1. GLUCOPHAGE [Suspect]
     Indication: DIABETES MELLITUS
     Dates: start: 19971101
  2. THYROID SUPPLEMENT [Concomitant]
  3. FLONASE [Concomitant]

REACTIONS (1)
  - VITAMIN B12 DEFICIENCY [None]
